FAERS Safety Report 16728370 (Version 2)
Quarter: 2019Q4

REPORT INFORMATION
  Report Type: Spontaneous
  Country: PL (occurrence: PL)
  Receive Date: 20190822
  Receipt Date: 20191118
  Transmission Date: 20200122
  Serious: Yes (Other)
  Sender: FDA-Public Use
  Company Number: PL-REGENERON PHARMACEUTICALS, INC.-2019-48991

PATIENT

DRUGS (2)
  1. EYLEA [Suspect]
     Active Substance: AFLIBERCEPT
     Indication: NEOVASCULAR AGE-RELATED MACULAR DEGENERATION
     Dosage: 1 DF, ONCE
     Dates: start: 201905, end: 201905
  2. EYLEA [Suspect]
     Active Substance: AFLIBERCEPT
     Dosage: PATIENT RECEIVED IN TOTAL 3 INJECTIONS
     Dates: start: 2019, end: 2019

REACTIONS (2)
  - Myasthenia gravis [Unknown]
  - Neurotoxicity [Unknown]

NARRATIVE: CASE EVENT DATE: 2019
